FAERS Safety Report 5136197-8 (Version None)
Quarter: 2006Q4

REPORT INFORMATION
  Report Type: 
  Country: None (occurrence: None)
  Receive Date: 20061027
  Receipt Date: 20061013
  Transmission Date: 20070319
  Serious: Yes (Hospitalization)
  Sender: FDA-Public Use
  Company Number: CH-ROCHE-467431

PATIENT
  Age: 47 Year
  Sex: Male

DRUGS (9)
  1. TOREM [Suspect]
     Indication: DRUG USE FOR UNKNOWN INDICATION
     Route: 048
     Dates: end: 20060813
  2. ATENOLOL [Interacting]
     Indication: DRUG USE FOR UNKNOWN INDICATION
     Route: 048
     Dates: end: 20060813
  3. ADALAT [Interacting]
     Indication: DRUG USE FOR UNKNOWN INDICATION
     Route: 048
     Dates: end: 20060813
  4. RENITEN [Interacting]
     Indication: DRUG USE FOR UNKNOWN INDICATION
     Route: 048
  5. KEPPRA [Concomitant]
     Route: 048
  6. IMOVANE [Concomitant]
     Route: 048
  7. LIORESAL [Concomitant]
     Route: 048
  8. TRANXILIUM [Concomitant]
     Route: 048
  9. ARTANE [Concomitant]
     Route: 048

REACTIONS (3)
  - DRUG INTERACTION [None]
  - HYPOTENSION [None]
  - MALAISE [None]
